FAERS Safety Report 5797244-3 (Version None)
Quarter: 2008Q3

REPORT INFORMATION
  Report Type: 
  Country: None (occurrence: None)
  Receive Date: 20080701
  Receipt Date: 20080624
  Transmission Date: 20090109
  Serious: Yes (Hospitalization, Disabling)
  Sender: FDA-Public Use
  Company Number: JP-MERCK-0806USA00894

PATIENT
  Age: 49 Year
  Sex: Male

DRUGS (9)
  1. SINGULAIR [Suspect]
     Indication: ASTHMA
     Route: 048
     Dates: start: 20070216, end: 20080604
  2. PREDONINE [Suspect]
     Indication: ASTHMA
     Route: 048
     Dates: start: 19950101
  3. BETAMETHASONE [Concomitant]
     Indication: OTITIS MEDIA
     Route: 001
     Dates: start: 20070115, end: 20080508
  4. FLUNASE (FLUTICASONE PROPIONATE) [Concomitant]
     Indication: SINUSITIS
     Route: 065
     Dates: start: 20080410, end: 20080508
  5. THEO-DUR [Concomitant]
     Indication: ASTHMA
     Route: 048
     Dates: start: 20030324
  6. FLUTIDE [Concomitant]
     Indication: ASTHMA
     Route: 048
     Dates: start: 20030324
  7. ALLELOCK [Concomitant]
     Indication: ASTHMA
     Route: 048
     Dates: start: 20030324
  8. SEREVENT [Concomitant]
     Indication: ASTHMA
     Route: 048
     Dates: start: 20080324
  9. MUCODYNE [Concomitant]
     Indication: ASTHMA
     Route: 048
     Dates: start: 20070105

REACTIONS (1)
  - ALLERGIC GRANULOMATOUS ANGIITIS [None]
